FAERS Safety Report 16566052 (Version 1)
Quarter: 2019Q3

REPORT INFORMATION
  Report Type: Spontaneous
  Country: IT (occurrence: IT)
  Receive Date: 20190712
  Receipt Date: 20190712
  Transmission Date: 20191004
  Serious: Yes (Hospitalization)
  Sender: FDA-Public Use
  Company Number: IT-PFIZER INC-2019295557

PATIENT
  Age: 62 Year
  Sex: Female

DRUGS (7)
  1. CRIZOTINIB [Suspect]
     Active Substance: CRIZOTINIB
     Dosage: 2 DF, DAILY
     Dates: start: 201904
  2. LEVOTHYROXINE SODIUM. [Concomitant]
     Active Substance: LEVOTHYROXINE SODIUM
     Dosage: 150 UG, DAILY
  3. FUROSEMIDE. [Concomitant]
     Active Substance: FUROSEMIDE
     Dosage: 3 DF, DAILY
  4. CRIZOTINIB [Suspect]
     Active Substance: CRIZOTINIB
     Dosage: 1 DF, 1X/DAY
     Dates: start: 201905, end: 201906
  5. PANTOPRAZOLE [Concomitant]
     Active Substance: PANTOPRAZOLE
     Dosage: 40 MG, DAILY
  6. CRIZOTINIB [Suspect]
     Active Substance: CRIZOTINIB
     Indication: LUNG ADENOCARCINOMA
     Dosage: 2 DF, DAILY
     Dates: start: 201810
  7. DESLORATADINE. [Concomitant]
     Active Substance: DESLORATADINE
     Dosage: 5 MG, DAILY

REACTIONS (2)
  - Pericardial effusion [Unknown]
  - Transaminases increased [Unknown]

NARRATIVE: CASE EVENT DATE: 201903
